FAERS Safety Report 17206633 (Version 1)
Quarter: 2019Q4

REPORT INFORMATION
  Report Type: Spontaneous
  Country: FR (occurrence: US)
  Receive Date: 20191227
  Receipt Date: 20191227
  Transmission Date: 20200122
  Serious: Yes (Hospitalization)
  Sender: FDA-Public Use
  Company Number: FR-SUN PHARMACEUTICAL INDUSTRIES LTD-2018RR-189736

PATIENT
  Age: 48 Year
  Sex: Female
  Weight: 72 kg

DRUGS (14)
  1. KETAMINE [Suspect]
     Active Substance: KETAMINE
     Dosage: 50 MILLIGRAM, MONTHLY
     Route: 041
     Dates: start: 201410, end: 201411
  2. KETAMINE [Suspect]
     Active Substance: KETAMINE
     Dosage: 50 MILLIGRAM, MONTHLY
     Route: 041
     Dates: start: 201411
  3. SKENAN [Suspect]
     Active Substance: MORPHINE SULFATE
     Indication: PRODUCT USED FOR UNKNOWN INDICATION
     Dosage: 40 MILLIGRAM, DAILY
     Route: 048
  4. KETAMINE [Suspect]
     Active Substance: KETAMINE
     Dosage: 70 MILLIGRAM, MONTHLY
     Route: 041
     Dates: start: 201501, end: 201502
  5. KETAMINE [Suspect]
     Active Substance: KETAMINE
     Dosage: 70 MILLIGRAM, MONTHLY
     Route: 041
     Dates: start: 201502
  6. HYDROCORTISONE. [Suspect]
     Active Substance: HYDROCORTISONE
     Indication: PRODUCT USED FOR UNKNOWN INDICATION
     Dosage: 20 MILLIGRAM, DAILY
     Route: 065
  7. PARACETAMOL [Suspect]
     Active Substance: ACETAMINOPHEN
     Indication: PRODUCT USED FOR UNKNOWN INDICATION
     Dosage: ()
     Route: 065
  8. KETAMINE [Suspect]
     Active Substance: KETAMINE
     Dosage: 50 MILLIGRAM, MONTHLY
     Route: 041
     Dates: start: 201407, end: 201407
  9. KETAMINE [Suspect]
     Active Substance: KETAMINE
     Dosage: 50MG EN JUILLET 2014, OCTOBRE 2014, NOVEMBRE 2014
     Route: 041
     Dates: start: 201407, end: 201407
  10. INEXIUM [Suspect]
     Active Substance: ESOMEPRAZOLE
     Indication: PRODUCT USED FOR UNKNOWN INDICATION
     Dosage: UNK ()
     Route: 048
  11. KETAMINE [Suspect]
     Active Substance: KETAMINE
     Dosage: 70 MILLIGRAM, MONTHLY
     Route: 041
     Dates: start: 201501, end: 201502
  12. LERCAN [Suspect]
     Active Substance: LERCANIDIPINE
     Indication: PRODUCT USED FOR UNKNOWN INDICATION
     Dosage: 10 MILLIGRAM, DAILY
     Route: 065
  13. KETAMINE [Suspect]
     Active Substance: KETAMINE
     Indication: PRODUCT USED FOR UNKNOWN INDICATION
     Dosage: 50 MILLIGRAM, MONTHLY
     Route: 041
     Dates: start: 201410, end: 201411
  14. LYRICA [Suspect]
     Active Substance: PREGABALIN
     Indication: PRODUCT USED FOR UNKNOWN INDICATION
     Dosage: UNK ()
     Route: 048
     Dates: start: 201209, end: 20150101

REACTIONS (1)
  - Hepatocellular injury [Recovered/Resolved]

NARRATIVE: CASE EVENT DATE: 20150323
